FAERS Safety Report 20727750 (Version 1)
Quarter: 2022Q2

REPORT INFORMATION
  Report Type: Other
  Country: US (occurrence: None)
  Receive Date: 20220419
  Receipt Date: 20220419
  Transmission Date: 20220721
  Serious: No
  Sender: FDA-Public Use
  Company Number: US-ROCHE-3025496

PATIENT
  Age: 67 Year
  Sex: Male

DRUGS (3)
  1. ADO-TRASTUZUMAB EMTANSINE [Suspect]
     Active Substance: ADO-TRASTUZUMAB EMTANSINE
     Indication: Metastatic salivary gland cancer
     Route: 065
  2. NERATINIB [Suspect]
     Active Substance: NERATINIB
     Indication: Metastatic salivary gland cancer
     Route: 065
  3. DENOSUMAB [Concomitant]
     Active Substance: DENOSUMAB

REACTIONS (2)
  - Disease progression [Recovered/Resolved]
  - Drug ineffective [Unknown]
